FAERS Safety Report 5015787-7 (Version None)
Quarter: 2006Q2

REPORT INFORMATION
  Report Type: 
  Country: None (occurrence: None)
  Receive Date: 20060525
  Receipt Date: 20060516
  Transmission Date: 20061013
  Serious: Yes (Hospitalization)
  Sender: FDA-Public Use
  Company Number: 2006-05-1371

PATIENT
  Sex: Female

DRUGS (4)
  1. PEG-INTRON [Suspect]
     Indication: HEPATITIS C
     Dosage: 50-30 MCG*QW SUBCUTANEOUS
     Route: 058
     Dates: start: 20060101, end: 20060101
  2. PEG-INTRON [Suspect]
     Indication: HEPATITIS C
     Dosage: 50-30 MCG*QW SUBCUTANEOUS
     Route: 058
     Dates: start: 20060101, end: 20060515
  3. PEG-INTRON [Suspect]
     Indication: HEPATITIS C
     Dosage: 50-30 MCG*QW SUBCUTANEOUS
     Route: 058
     Dates: start: 20060101, end: 20060515
  4. REBETOL [Suspect]
     Indication: HEPATITIS C
     Dosage: 600 MG ORAL
     Route: 048
     Dates: start: 20060101, end: 20060515

REACTIONS (2)
  - PLATELET COUNT DECREASED [None]
  - SUBARACHNOID HAEMORRHAGE [None]
